FAERS Safety Report 8004832-2 (Version None)
Quarter: 2011Q4

REPORT INFORMATION
  Report Type: 
  Country: None (occurrence: None)
  Receive Date: 20111223
  Receipt Date: 20111214
  Transmission Date: 20120403
  Serious: Yes (Other)
  Sender: FDA-Public Use
  Company Number: US-BRISTOL-MYERS SQUIBB COMPANY-16294050

PATIENT
  Age: 87 Year
  Sex: Female
  Weight: 84 kg

DRUGS (1)
  1. COUMADIN [Suspect]
     Indication: CARDIAC PACEMAKER INSERTION

REACTIONS (7)
  - FALL [None]
  - WEIGHT DECREASED [None]
  - NASOPHARYNGITIS [None]
  - OEDEMA PERIPHERAL [None]
  - HIATUS HERNIA [None]
  - TOOTH EXTRACTION [None]
  - INTERNATIONAL NORMALISED RATIO ABNORMAL [None]
